FAERS Safety Report 7446934-5 (Version None)
Quarter: 2011Q2

REPORT INFORMATION
  Report Type: 
  Country: None (occurrence: None)
  Receive Date: 20110429
  Receipt Date: 20101108
  Transmission Date: 20111010
  Serious: No
  Sender: FDA-Public Use
  Company Number: US-ASTRAZENECA-2010SE53491

PATIENT
  Age: 33 Year
  Sex: Female
  Weight: 90.7 kg

DRUGS (7)
  1. WELLBUTRIN [Concomitant]
     Indication: DEPRESSION
  2. NEXIUM [Suspect]
     Indication: GASTROOESOPHAGEAL REFLUX DISEASE
     Route: 048
     Dates: start: 20101104
  3. AMITRIPTLINE HYDROCHLORIDE TAB [Concomitant]
     Indication: SLEEP DISORDER
  4. AMITRIPTLINE HYDROCHLORIDE TAB [Concomitant]
     Indication: DEPRESSION
  5. BIRTH CONTROL INJECTION [Concomitant]
     Indication: CONTRACEPTION
  6. GLIMEPIRIDE [Concomitant]
     Indication: DIABETES MELLITUS
  7. AMITRIPTLINE HYDROCHLORIDE TAB [Concomitant]
     Indication: PAIN

REACTIONS (2)
  - DRUG DOSE OMISSION [None]
  - HEADACHE [None]
